FAERS Safety Report 6838280-5 (Version None)
Quarter: 2010Q3

REPORT INFORMATION
  Report Type: 
  Country: None (occurrence: None)
  Receive Date: 20100713
  Receipt Date: 20070605
  Transmission Date: 20110219
  Serious: No
  Sender: FDA-Public Use
  Company Number: US-PFIZER INC-2007047525

PATIENT
  Sex: Male
  Weight: 81.8 kg

DRUGS (5)
  1. CHANTIX [Suspect]
     Indication: SMOKING CESSATION THERAPY
     Dates: start: 20070601
  2. METOPROLOL [Concomitant]
  3. VYTORIN [Concomitant]
  4. ACETYLSALICYLIC ACID [Concomitant]
  5. ONE-A-DAY [Concomitant]

REACTIONS (2)
  - INSOMNIA [None]
  - OROPHARYNGEAL PAIN [None]
